FAERS Safety Report 6104773-1 (Version None)
Quarter: 2009Q1

REPORT INFORMATION
  Report Type: 
  Country: None (occurrence: None)
  Receive Date: 20090304
  Receipt Date: 20090304
  Transmission Date: 20090719
  Serious: No
  Sender: FDA-Public Use
  Company Number: None

PATIENT
  Age: 42 Year
  Sex: Female
  Weight: 120.6568 kg

DRUGS (2)
  1. KEPPRA [Suspect]
     Dosage: 500 MG TABS 3 BID PO
     Route: 048
  2. LEVETIRACETAM [Suspect]
     Dosage: 500 MG TABS 3 BID PO
     Route: 048

REACTIONS (3)
  - CONDITION AGGRAVATED [None]
  - CONVULSION [None]
  - THERAPEUTIC RESPONSE UNEXPECTED WITH DRUG SUBSTITUTION [None]
